APPROVED DRUG PRODUCT: EMOQUETTE
Active Ingredient: DESOGESTREL; ETHINYL ESTRADIOL
Strength: 0.15MG;0.03MG
Dosage Form/Route: TABLET;ORAL-28
Application: A076675 | Product #001
Applicant: PH HEALTH LTD
Approved: Feb 25, 2011 | RLD: No | RS: No | Type: DISCN